FAERS Safety Report 9506135 (Version 1)
Quarter: 2013Q1

REPORT INFORMATION
  Report Type: Spontaneous
  Country: US (occurrence: None)
  Receive Date: 20130301
  Receipt Date: 20130301
  Transmission Date: 20140127
  Serious: Yes (Other)
  Sender: FDA-Public Use
  Company Number: PHEH2012US012437

PATIENT
  Age: 70 Year
  Sex: Female

DRUGS (1)
  1. TEGRETOL (CARBAMAZEPINE) UNKNOWN [Suspect]

REACTIONS (2)
  - Granulocytopenia [None]
  - Leukopenia [None]
